FAERS Safety Report 6460537-0 (Version None)
Quarter: 2009Q4

REPORT INFORMATION
  Report Type: 
  Country: None (occurrence: None)
  Receive Date: 20091130
  Receipt Date: 20091117
  Transmission Date: 20100525
  Serious: Yes (Other)
  Sender: FDA-Public Use
  Company Number: US-JNJFOC-20091105830

PATIENT
  Sex: Female
  Weight: 85.28 kg

DRUGS (4)
  1. TOPAMAX [Suspect]
     Indication: CONVULSION
     Route: 048
     Dates: start: 20090601
  2. PROPRANOLOL [Concomitant]
     Indication: HEART RATE DECREASED
     Route: 048
     Dates: start: 20040101
  3. AGGRENOX [Concomitant]
     Indication: ANTICOAGULANT THERAPY
     Route: 048
     Dates: start: 20040101
  4. AMLODIPINE BESYLATE [Concomitant]
     Indication: BLOOD PRESSURE
     Route: 048
     Dates: start: 20060101

REACTIONS (2)
  - ADVERSE EVENT [None]
  - LOSS OF CONSCIOUSNESS [None]
